FAERS Safety Report 8797377 (Version 3)
Quarter: 2014Q2

REPORT INFORMATION
  Report Type: Spontaneous
  Country: US (occurrence: US)
  Receive Date: 20120920
  Receipt Date: 20131024
  Transmission Date: 20141212
  Serious: No
  Sender: FDA-Public Use
  Company Number: US-PFIZER INC-2012230299

PATIENT
  Sex: Male

DRUGS (2)
  1. DILANTIN [Suspect]
     Indication: EPILEPSY
     Dosage: 100 MG, 2X/DAY
     Route: 048
  2. DILANTIN [Suspect]
     Indication: EPILEPSY
     Dosage: 50 MG, UNK
     Route: 048

REACTIONS (5)
  - Drug dispensing error [Unknown]
  - Incorrect drug dosage form administered [Unknown]
  - Dysuria [Unknown]
  - Malaise [Unknown]
  - Constipation [Unknown]
